FAERS Safety Report 7395351-5 (Version None)
Quarter: 2011Q2

REPORT INFORMATION
  Report Type: 
  Country: None (occurrence: None)
  Receive Date: 20110405
  Receipt Date: 20110331
  Transmission Date: 20111010
  Serious: Yes (Other)
  Sender: FDA-Public Use
  Company Number: US-PFIZER INC-2011063782

PATIENT
  Sex: Male
  Weight: 83 kg

DRUGS (4)
  1. BUSPAR [Concomitant]
     Dosage: 15 MG, 2X/DAY
  2. ZOLOFT [Suspect]
     Indication: MAJOR DEPRESSION
     Dosage: 200 MG, 1X/DAY
     Route: 048
     Dates: start: 20061001, end: 20110313
  3. SUDAFED 12 HOUR [Concomitant]
     Indication: HYPERSENSITIVITY
     Dosage: UNK
  4. STRATTERA [Concomitant]
     Dosage: 80 MG, UNK

REACTIONS (3)
  - WITHDRAWAL SYNDROME [None]
  - CRYING [None]
  - ANGER [None]
